FAERS Safety Report 12494183 (Version 1)
Quarter: 2016Q2

REPORT INFORMATION
  Report Type: Spontaneous
  Country: US (occurrence: US)
  Receive Date: 20160623
  Receipt Date: 20160623
  Transmission Date: 20160815
  Serious: No
  Sender: FDA-Public Use
  Company Number: US-AQUA PHARMACEUTICALS-2015AQU000068

PATIENT
  Sex: Female

DRUGS (1)
  1. CORDRAN [Suspect]
     Active Substance: FLURANDRENOLIDE
     Indication: SKIN EXFOLIATION
     Dosage: 120 G, UNK
     Route: 061
     Dates: start: 20151007

REACTIONS (6)
  - Product container issue [Not Recovered/Not Resolved]
  - Product physical issue [Not Recovered/Not Resolved]
  - Dry skin [Not Recovered/Not Resolved]
  - Product difficult to remove [Not Recovered/Not Resolved]
  - Alopecia [Not Recovered/Not Resolved]
  - Drug effect decreased [Not Recovered/Not Resolved]

NARRATIVE: CASE EVENT DATE: 2015
